FAERS Safety Report 6933941-1 (Version None)
Quarter: 2010Q3

REPORT INFORMATION
  Report Type: 
  Country: None (occurrence: None)
  Receive Date: 20100820
  Receipt Date: 20100810
  Transmission Date: 20110219
  Serious: Yes (Other)
  Sender: FDA-Public Use
  Company Number: US-PFIZER INC-2010074876

PATIENT
  Sex: Female

DRUGS (2)
  1. AZITHROMYCIN [Suspect]
     Indication: OTITIS MEDIA
     Dosage: UNK
     Route: 048
     Dates: start: 20100706
  2. AZITHROMYCIN [Suspect]
     Indication: SINUSITIS

REACTIONS (1)
  - PALPITATIONS [None]
